FAERS Safety Report 6483922-X (Version None)
Quarter: 2009Q4

REPORT INFORMATION
  Report Type: 
  Country: None (occurrence: None)
  Receive Date: 20091209
  Receipt Date: 20091203
  Transmission Date: 20100525
  Serious: Yes (Disabling)
  Sender: FDA-Public Use
  Company Number: US-MERCK-0712USA02223

PATIENT
  Age: 55 Year
  Sex: Female
  Weight: 58 kg

DRUGS (9)
  1. FOSAMAX [Suspect]
     Indication: OSTEOPENIA
     Route: 048
     Dates: start: 20011101, end: 20060101
  2. FOSAMAX [Suspect]
     Route: 048
     Dates: start: 20010201, end: 20011001
  3. FOSAMAX [Suspect]
     Indication: OSTEOPOROSIS
     Route: 048
     Dates: start: 20011101, end: 20060101
  4. FOSAMAX [Suspect]
     Route: 048
     Dates: start: 20010201, end: 20011001
  5. ZOLOFT [Concomitant]
     Route: 065
  6. XANAX [Concomitant]
     Route: 065
  7. REMERON [Concomitant]
     Route: 065
  8. PREMPRO [Concomitant]
     Route: 065
  9. HORMONES (UNSPECIFIED) [Concomitant]
     Indication: HORMONE THERAPY
     Route: 065
     Dates: start: 19860101, end: 20060101

REACTIONS (17)
  - ABSCESS [None]
  - ANXIETY [None]
  - ATTENTION DEFICIT/HYPERACTIVITY DISORDER [None]
  - BONE DENSITY DECREASED [None]
  - DENTAL CARIES [None]
  - DEPRESSION [None]
  - DRUG DEPENDENCE [None]
  - EATING DISORDER [None]
  - LOOSE TOOTH [None]
  - PANIC ATTACK [None]
  - PERIODONTAL DISEASE [None]
  - PHYSICAL DISABILITY [None]
  - POST-TRAUMATIC STRESS DISORDER [None]
  - POSTMENOPAUSAL HAEMORRHAGE [None]
  - TOOTH FRACTURE [None]
  - TOOTH LOSS [None]
  - UTERINE POLYP [None]
